FAERS Safety Report 21582567 (Version 1)
Quarter: 2022Q4

REPORT INFORMATION
  Report Type: Spontaneous
  Country: DE (occurrence: DE)
  Receive Date: 20221111
  Receipt Date: 20221111
  Transmission Date: 20230113
  Serious: Yes (Hospitalization, Other)
  Sender: FDA-Public Use
  Company Number: DE-DCGMA-22199615

PATIENT
  Age: 71 Year
  Sex: Female
  Weight: 70 kg

DRUGS (4)
  1. AMOXICILLIN [Suspect]
     Active Substance: AMOXICILLIN
     Indication: Otitis media
     Dates: start: 20220901, end: 20220907
  2. PAXLOVID [Suspect]
     Active Substance: NIRMATRELVIR\RITONAVIR
     Indication: COVID-19
     Dates: start: 20220819, end: 20220823
  3. ATORVASTATIN [Concomitant]
     Active Substance: ATORVASTATIN
  4. ACALABRUTINIB [Concomitant]
     Active Substance: ACALABRUTINIB

REACTIONS (3)
  - Drug-induced liver injury [Unknown]
  - Acute kidney injury [Unknown]
  - Acute hepatic failure [Unknown]

NARRATIVE: CASE EVENT DATE: 20220916
